FAERS Safety Report 6132155-5 (Version None)
Quarter: 2009Q1

REPORT INFORMATION
  Report Type: 
  Country: None (occurrence: None)
  Receive Date: 20090325
  Receipt Date: 20090319
  Transmission Date: 20090719
  Serious: Yes (Other)
  Sender: FDA-Public Use
  Company Number: B0559207A

PATIENT
  Age: 7 Year
  Sex: Male
  Weight: 24 kg

DRUGS (7)
  1. RELENZA [Suspect]
     Indication: INFLUENZA
     Dosage: 10MG PER DAY
     Route: 055
     Dates: start: 20090207, end: 20090207
  2. ACETAMINOPHEN [Concomitant]
     Route: 048
     Dates: start: 20090207
  3. HUSTAZOL [Concomitant]
     Indication: BRONCHITIS
     Route: 048
     Dates: start: 20090207
  4. MUCODYNE [Concomitant]
     Indication: BRONCHITIS
     Route: 048
     Dates: start: 20090207
  5. CLARITH [Concomitant]
     Indication: BRONCHITIS
     Route: 048
     Dates: start: 20090207
  6. HOKUNALIN [Concomitant]
     Indication: BRONCHITIS
     Route: 061
     Dates: start: 20090206
  7. ANTIPYRETICS [Concomitant]
     Route: 065

REACTIONS (8)
  - ABNORMAL BEHAVIOUR [None]
  - CRYING [None]
  - FEELING ABNORMAL [None]
  - HALLUCINATION, VISUAL [None]
  - HYPERHIDROSIS [None]
  - PYREXIA [None]
  - RESTLESSNESS [None]
  - STARING [None]
